FAERS Safety Report 16457398 (Version 1)
Quarter: 2019Q2

REPORT INFORMATION
  Report Type: Spontaneous
  Country: US (occurrence: US)
  Receive Date: 20190510
  Receipt Date: 20190510
  Transmission Date: 20190711
  Serious: No
  Sender: FDA-Public Use
  Company Number: None

PATIENT
  Age: 54 Year
  Sex: Male

DRUGS (1)
  1. REPATHA [Suspect]
     Active Substance: EVOLOCUMAB
     Dosage: OTHER FREQUENCY: OTHER
     Route: 058
     Dates: start: 20190319

REACTIONS (2)
  - Diarrhoea [None]
  - Injection site bruising [None]

NARRATIVE: CASE EVENT DATE: 20190430
